FAERS Safety Report 22040471 (Version 1)
Quarter: 2023Q1

REPORT INFORMATION
  Report Type: Spontaneous
  Country: US (occurrence: US)
  Receive Date: 20230227
  Receipt Date: 20230227
  Transmission Date: 20230417
  Serious: No
  Sender: FDA-Public Use
  Company Number: US-BAYER-2023A019385

PATIENT
  Age: 16 Year
  Sex: Female

DRUGS (2)
  1. ADEMPAS [Suspect]
     Active Substance: RIOCIGUAT
     Indication: Product used for unknown indication
     Dosage: 2.5 MG
  2. SELEXIPAG [Suspect]
     Active Substance: SELEXIPAG
     Indication: Pulmonary arterial hypertension
     Dosage: 2.5 MG
     Dates: start: 20180711

REACTIONS (5)
  - Abdominal pain upper [None]
  - Dyspepsia [None]
  - Diarrhoea [None]
  - Muscle spasms [None]
  - Abnormal faeces [None]
